FAERS Safety Report 5092941-X (Version None)
Quarter: 2006Q3

REPORT INFORMATION
  Report Type: 
  Country: None (occurrence: None)
  Receive Date: 20060830
  Receipt Date: 20060628
  Transmission Date: 20061208
  Serious: Yes (Disabling)
  Sender: FDA-Public Use
  Company Number: 2006UW13628

PATIENT
  Age: 80 Year
  Sex: Male

DRUGS (2)
  1. CASODEX [Suspect]
     Indication: PROSTATE CANCER
     Route: 048
     Dates: start: 20060303, end: 20060310
  2. LUPRON [Concomitant]
     Indication: PROSTATE CANCER
     Dosage: EVERY FOUR MONTHS
     Dates: start: 20040401

REACTIONS (5)
  - ARTHRALGIA [None]
  - ASTHENIA [None]
  - COORDINATION ABNORMAL [None]
  - FALL [None]
  - GAIT DISTURBANCE [None]
